FAERS Safety Report 4653940-2 (Version None)
Quarter: 2005Q2

REPORT INFORMATION
  Report Type: 
  Country: None (occurrence: None)
  Receive Date: 20050404
  Receipt Date: 20041203
  Transmission Date: 20051028
  Serious: No
  Sender: FDA-Public Use
  Company Number: USA041285174

PATIENT
  Age: 28 Year
  Sex: Male
  Weight: 107 kg

DRUGS (2)
  1. CYMBALTA [Suspect]
     Indication: AGGRESSION
     Dosage: 60 MG DAY
     Dates: start: 20041001
  2. LEXAPRO [Concomitant]

REACTIONS (2)
  - AGGRESSION [None]
  - BIPOLAR DISORDER [None]
